FAERS Safety Report 19069311 (Version 9)
Quarter: 2022Q4

REPORT INFORMATION
  Report Type: Report from Study
  Country: CN (occurrence: None)
  Receive Date: 20210329
  Receipt Date: 20221031
  Transmission Date: 20230112
  Serious: Yes (Hospitalization)
  Sender: FDA-Public Use
  Company Number: CN-ROCHE-2794056

PATIENT
  Age: 60 Year
  Sex: Male
  Weight: 78 kg

DRUGS (19)
  1. BEVACIZUMAB [Suspect]
     Active Substance: BEVACIZUMAB
     Indication: Non-small cell lung cancer stage IV
     Dosage: ON 02/MAR/2021, HE RECEIVED MOST RECENT DOSE OF BEVACIZUMAB (1200 MG) PRIOR TO ONSET OF SERIOUS ADVE
     Route: 042
     Dates: start: 20201229
  2. CARBOPLATIN [Suspect]
     Active Substance: CARBOPLATIN
     Indication: Non-small cell lung cancer stage IV
     Dosage: ON 02/MAR/2021, HE RECEIVED OF MOST RECENT DOSE OF CARBOPLATIN (750 MG) PRIOR TO ONSET OF SERIOUS AD
     Route: 042
     Dates: start: 20201229
  3. PEMETREXED [Suspect]
     Active Substance: PEMETREXED
     Indication: Non-small cell lung cancer stage IV
     Dosage: ON 02/MAR/2021, HE RECEIVED MOST RECENT DOSE OF PEMETREXED (970 MG) PRIOR TO ONSET OF SERIOUS ADVERS
     Route: 042
     Dates: start: 20201229
  4. ATEZOLIZUMAB [Suspect]
     Active Substance: ATEZOLIZUMAB
     Indication: Non-small cell lung cancer stage IV
     Dosage: ON 02/MAR/2021, HE RECEIVED MOST RECENT DOSE OF BLINDED ATEZOLIZUMAB PRIOR TO ONSET OF SERIOUS ADVER
     Route: 041
     Dates: start: 20201229
  5. ENALAPRIL MALEATE [Concomitant]
     Active Substance: ENALAPRIL MALEATE
     Indication: Hypertension
     Dates: start: 2005, end: 20210507
  6. ATORVASTATIN CALCIUM [Concomitant]
     Active Substance: ATORVASTATIN CALCIUM
     Indication: Coronary artery disease
     Dates: start: 2018
  7. ASPIRIN [Concomitant]
     Active Substance: ASPIRIN
     Indication: Coronary artery disease
     Dates: start: 2018, end: 20210507
  8. FOLIC ACID [Concomitant]
     Active Substance: FOLIC ACID
     Dates: start: 20201221
  9. DOMPERIDONE [Concomitant]
     Active Substance: DOMPERIDONE
     Indication: Gastritis
     Dates: start: 20201231
  10. LACTULOSE [Concomitant]
     Active Substance: LACTULOSE
     Indication: Constipation
     Dates: start: 20210101
  11. OMEPRAZOLE [Concomitant]
     Active Substance: OMEPRAZOLE
     Indication: Gastritis
     Dates: start: 20210104
  12. MUCOPOLYSACCHARIDE POLYSULFATE [Concomitant]
     Dates: start: 20210120
  13. RABEPRAZOLE SODIUM [Concomitant]
     Active Substance: RABEPRAZOLE SODIUM
     Indication: Abdominal pain upper
     Dates: start: 20210113, end: 20210307
  14. DEXAMETHASONE ACETATE [Concomitant]
     Active Substance: DEXAMETHASONE ACETATE
     Indication: Prophylaxis
     Route: 048
     Dates: start: 20210301, end: 20210303
  15. DEXAMETHASONE ACETATE [Concomitant]
     Active Substance: DEXAMETHASONE ACETATE
     Route: 048
     Dates: start: 20210322, end: 20210324
  16. TROPISETRON HYDROCHLORIDE [Concomitant]
     Active Substance: TROPISETRON HYDROCHLORIDE
     Dates: start: 20210302, end: 20210302
  17. APREPITANT [Concomitant]
     Active Substance: APREPITANT
     Dates: start: 20210302, end: 20210302
  18. FUROSEMIDE [Concomitant]
     Active Substance: FUROSEMIDE
     Dates: start: 20210302, end: 20210302
  19. VITAMIN B12 [Concomitant]
     Active Substance: CYANOCOBALAMIN
     Dates: start: 20210302, end: 20210302

REACTIONS (1)
  - Myelosuppression [Recovered/Resolved]

NARRATIVE: CASE EVENT DATE: 20210315
